FAERS Safety Report 19432002 (Version 1)
Quarter: 2021Q2

REPORT INFORMATION
  Report Type: Spontaneous
  Country: FR (occurrence: FR)
  Receive Date: 20210618
  Receipt Date: 20210618
  Transmission Date: 20210717
  Serious: Yes (Hospitalization, Other)
  Sender: FDA-Public Use
  Company Number: FR-SUN PHARMACEUTICAL INDUSTRIES LTD-2020RR-273645

PATIENT
  Age: 15 Year
  Sex: Female
  Weight: 41 kg

DRUGS (3)
  1. DOBUTAMINE [Suspect]
     Active Substance: DOBUTAMINE HYDROCHLORIDE
     Indication: RIGHT VENTRICULAR FAILURE
     Dosage: UNK
     Route: 065
  2. NOREPINEPHRINE. [Suspect]
     Active Substance: NOREPINEPHRINE
     Indication: RIGHT VENTRICULAR FAILURE
     Dosage: UNK
     Route: 065
  3. EPOPROSTENOL. [Suspect]
     Active Substance: EPOPROSTENOL
     Indication: RIGHT VENTRICULAR FAILURE
     Dosage: UNK
     Route: 065

REACTIONS (2)
  - Syncope [Unknown]
  - Renal failure [Unknown]
